FAERS Safety Report 12789120 (Version 2)
Quarter: 2016Q3

REPORT INFORMATION
  Report Type: Spontaneous
  Country: US (occurrence: US)
  Receive Date: 20160928
  Receipt Date: 20160930
  Transmission Date: 20161109
  Serious: No
  Sender: FDA-Public Use
  Company Number: US-009507513-1609USA011659

PATIENT
  Age: 83 Year
  Sex: Male

DRUGS (1)
  1. KEYTRUDA [Suspect]
     Active Substance: PEMBROLIZUMAB
     Indication: HEAD AND NECK CANCER
     Dosage: 144.2 MG, ONCE EVERY 3 WEEKS(Q3W)
     Route: 042
     Dates: start: 20160901

REACTIONS (2)
  - Vasculitis [Unknown]
  - Fungal skin infection [Unknown]

NARRATIVE: CASE EVENT DATE: 201609
